FAERS Safety Report 13277022 (Version 1)
Quarter: 2017Q1

REPORT INFORMATION
  Report Type: Other
  Country: US (occurrence: US)
  Receive Date: 20170228
  Receipt Date: 20170228
  Transmission Date: 20170428
  Serious: Yes (Life-Threatening)
  Sender: FDA-Public Use
  Company Number: US-FRESENIUS KABI-FK201701554

PATIENT
  Age: 52 Year
  Sex: Female

DRUGS (7)
  1. FLUOXETINE [Suspect]
     Active Substance: FLUOXETINE HYDROCHLORIDE
     Indication: PRODUCT USED FOR UNKNOWN INDICATION
     Route: 065
  2. GABAPENTIN. [Suspect]
     Active Substance: GABAPENTIN
     Indication: PRODUCT USED FOR UNKNOWN INDICATION
     Route: 065
  3. RISPERIDONE. [Suspect]
     Active Substance: RISPERIDONE
     Indication: PRODUCT USED FOR UNKNOWN INDICATION
     Route: 065
  4. FAMOTIDINE INJECTION (MANUFACTURER UNKNOWN) (FAMOTIDINE) FAMOTIDINE) [Suspect]
     Active Substance: FAMOTIDINE
     Indication: PRODUCT USED FOR UNKNOWN INDICATION
     Route: 065
  5. METHADONE [Suspect]
     Active Substance: METHADONE HYDROCHLORIDE
     Indication: PAIN
     Route: 065
  6. TRAZODONE [Concomitant]
     Active Substance: TRAZODONE HYDROCHLORIDE
     Indication: PRODUCT USED FOR UNKNOWN INDICATION
     Route: 065
  7. ALPRAZOLAM. [Concomitant]
     Active Substance: ALPRAZOLAM
     Indication: PRODUCT USED FOR UNKNOWN INDICATION
     Route: 065

REACTIONS (20)
  - Torsade de pointes [Recovered/Resolved]
  - Neck pain [None]
  - Condition aggravated [None]
  - Blood glucose increased [None]
  - Ventricular extrasystoles [None]
  - Alcohol use [None]
  - Urinary incontinence [None]
  - Confusional state [None]
  - Platelet count decreased [None]
  - Cardiac arrest [Recovered/Resolved]
  - Chest discomfort [None]
  - Brain natriuretic peptide increased [None]
  - Left atrial enlargement [None]
  - Dyspnoea [None]
  - Blood potassium decreased [None]
  - Left ventricular hypertrophy [None]
  - Electrocardiogram ST segment elevation [None]
  - Dizziness [None]
  - Coronary artery disease [None]
  - Treatment noncompliance [None]
